FAERS Safety Report 17083751 (Version 2)
Quarter: 2019Q4

REPORT INFORMATION
  Report Type: Report from Study
  Country: US (occurrence: US)
  Receive Date: 20191127
  Receipt Date: 20191219
  Transmission Date: 20200122
  Serious: Yes (Life-Threatening, Hospitalization)
  Sender: FDA-Public Use
  Company Number: US-JAZZ-2019-US-015418

PATIENT
  Age: 23 Year
  Sex: Female

DRUGS (2)
  1. CPX-351 [Suspect]
     Active Substance: CYTARABINE\DAUNORUBICIN
     Indication: ACUTE MYELOID LEUKAEMIA
     Dosage: UNK
     Route: 042
     Dates: start: 20191030, end: 20191105
  2. GEMTUZUMAB OZOGAMICIN [Suspect]
     Active Substance: GEMTUZUMAB OZOGAMICIN
     Indication: ACUTE MYELOID LEUKAEMIA
     Dosage: UNK
     Dates: start: 20191030, end: 20191105

REACTIONS (3)
  - Bacteraemia [Recovered/Resolved]
  - Seizure [Recovered/Resolved]
  - Bacteraemia [Recovered/Resolved]

NARRATIVE: CASE EVENT DATE: 20191107
